FAERS Safety Report 5076020-3 (Version None)
Quarter: 2006Q3

REPORT INFORMATION
  Report Type: 
  Country: None (occurrence: None)
  Receive Date: 20060808
  Receipt Date: 20060808
  Transmission Date: 20061208
  Serious: Yes (Other)
  Sender: FDA-Public Use
  Company Number: None

PATIENT
  Sex: Female
  Weight: 52.6173 kg

DRUGS (2)
  1. RIFABUTIN 300 MG DAILY [Suspect]
     Indication: MYCOBACTERIUM AVIUM COMPLEX INFECTION
     Dosage: 150 MG 2 TABS DAILY ORAL
     Route: 048
     Dates: start: 20060208, end: 20060223
  2. RIFABUTIN 300 MG DAILY [Suspect]
     Indication: MYCOBACTERIUM AVIUM COMPLEX INFECTION
     Dosage: 150 MG 2 TABS DAILY ORAL
     Route: 048
     Dates: start: 20060401, end: 20060407

REACTIONS (5)
  - ANOREXIA [None]
  - ASTHENIA [None]
  - HYPONATRAEMIA [None]
  - LEUKOPENIA [None]
  - PYREXIA [None]
